FAERS Safety Report 5753365-2 (Version None)
Quarter: 2008Q2

REPORT INFORMATION
  Report Type: 
  Country: None (occurrence: None)
  Receive Date: 20080530
  Receipt Date: 20080520
  Transmission Date: 20081010
  Serious: Yes (Hospitalization)
  Sender: FDA-Public Use
  Company Number: ES-ELI_LILLY_AND_COMPANY-ES200805004470

PATIENT
  Age: 71 Year
  Sex: Female

DRUGS (5)
  1. FORTEO [Suspect]
     Indication: OSTEOPOROSIS
     Dosage: 20 UG, UNKNOWN
     Route: 058
     Dates: start: 20071201
  2. LYRICA [Concomitant]
     Indication: PAIN
     Dosage: UNK, 3/D
     Route: 048
  3. DISNAL [Concomitant]
     Indication: OSTEOPOROSIS
     Dosage: UNK, EACH MORNING
     Route: 048
  4. DOPAR [Concomitant]
     Indication: PAIN
     Dosage: UNK, EACH MORNING
     Route: 048
  5. OPTRUMA [Concomitant]
     Dosage: UNK, DAILY (1/D)
     Route: 048

REACTIONS (1)
  - PERIPHERAL VASCULAR DISORDER [None]
